FAERS Safety Report 17444876 (Version 1)
Quarter: 2020Q1

REPORT INFORMATION
  Report Type: Spontaneous
  Country: PT (occurrence: PT)
  Receive Date: 20200221
  Receipt Date: 20200221
  Transmission Date: 20200409
  Serious: Yes (Other)
  Sender: FDA-Public Use
  Company Number: PT-TEVA-2020-PT-1189580

PATIENT
  Age: 39 Year

DRUGS (8)
  1. BISACODYL. [Concomitant]
     Active Substance: BISACODYL
  2. DESMOPRESSIN [Concomitant]
     Active Substance: DESMOPRESSIN
  3. LACTULOSE. [Concomitant]
     Active Substance: LACTULOSE
  4. COTRIMOXAZOLE [Suspect]
     Active Substance: SULFAMETHOXAZOLE\TRIMETHOPRIM
     Indication: URINARY TRACT INFECTION
     Dosage: 2 COMP. FROM 12 TO 12 HOURS - DURATION 2 DAYS
     Route: 048
     Dates: start: 20200203, end: 20200204
  5. PREGABALIN. [Concomitant]
     Active Substance: PREGABALIN
  6. AGIOLAX [Concomitant]
  7. BACLOFEN. [Concomitant]
     Active Substance: BACLOFEN
  8. CASSIA [Concomitant]

REACTIONS (3)
  - Lip oedema [Recovered/Resolved]
  - Malaise [Recovered/Resolved]
  - Dizziness [Recovered/Resolved]

NARRATIVE: CASE EVENT DATE: 20200204
